FAERS Safety Report 6846347-0 (Version None)
Quarter: 2010Q3

REPORT INFORMATION
  Report Type: 
  Country: None (occurrence: None)
  Receive Date: 20100712
  Receipt Date: 20100630
  Transmission Date: 20110219
  Serious: Yes (Hospitalization)
  Sender: FDA-Public Use
  Company Number: 7009657

PATIENT
  Age: 42 Year
  Sex: Male
  Weight: 70 kg

DRUGS (6)
  1. REBIF [Suspect]
     Indication: MULTIPLE SCLEROSIS
     Dosage: 22 MCG, 3 IN 1 WK, SUBCUTANEOUS
     Route: 058
     Dates: start: 20091222, end: 20091227
  2. ACTOS [Concomitant]
  3. METFORMIN HCL [Concomitant]
  4. HUMALOG INSULIN (INSULIN LISPRO) [Concomitant]
  5. HUMALOG 75/25 (HUMALOG MIX /01500801/) [Concomitant]
  6. LISINOPRIL (LISINOPRIL DIHYDRATE) [Concomitant]

REACTIONS (2)
  - BLOOD GLUCOSE DECREASED [None]
  - DIABETIC COMA [None]
